FAERS Safety Report 5620042-8 (Version None)
Quarter: 2008Q1

REPORT INFORMATION
  Report Type: 
  Country: None (occurrence: None)
  Receive Date: 20080208
  Receipt Date: 20080201
  Transmission Date: 20080703
  Serious: Yes (Other)
  Sender: FDA-Public Use
  Company Number: CA-JNJFOC-20080200456

PATIENT
  Sex: Female

DRUGS (1)
  1. NIZORAL [Suspect]
     Indication: RASH
     Dosage: 2 TIMES/WEEK FOR 2 WEEKS THEN ONCE A WEEK
     Route: 061

REACTIONS (3)
  - EYE DISORDER [None]
  - OCULAR HYPERAEMIA [None]
  - RASH [None]
